FAERS Safety Report 6196199-X (Version None)
Quarter: 2009Q2

REPORT INFORMATION
  Report Type: 
  Country: None (occurrence: None)
  Receive Date: 20090520
  Receipt Date: 20070326
  Transmission Date: 20091009
  Serious: Yes (Hospitalization, Other)
  Sender: FDA-Public Use
  Company Number: US-ASTRAZENECA-2006UW06988

PATIENT
  Age: 12353 Day
  Sex: Female
  Weight: 95.7 kg

DRUGS (33)
  1. SEROQUEL [Suspect]
     Indication: DEPRESSION
     Dosage: 100 - 1200 MG
     Route: 048
     Dates: start: 19991102
  2. SEROQUEL [Suspect]
     Indication: SCHIZOPHRENIA
     Dosage: 100 - 1200 MG
     Route: 048
     Dates: start: 19991102
  3. SEROQUEL [Suspect]
     Dosage: 300 MG TO 1200 MG
     Route: 048
     Dates: start: 20010301
  4. SEROQUEL [Suspect]
     Dosage: 300 MG TO 1200 MG
     Route: 048
     Dates: start: 20010301
  5. HALDOL [Concomitant]
     Route: 065
     Dates: start: 20000101
  6. RISPERDAL [Concomitant]
     Dosage: 1 MG TO 4 MG
     Route: 065
     Dates: start: 19961107, end: 19970703
  7. THORAZINE [Concomitant]
     Route: 065
  8. ZYPREXA [Concomitant]
     Route: 065
     Dates: start: 19970925, end: 19981016
  9. ZOCOR [Concomitant]
     Route: 048
  10. NEURONTIN [Concomitant]
     Indication: NEURALGIA
     Dosage: 300 - 1200 MG
     Route: 048
  11. LEXAPRO [Concomitant]
     Dosage: 20 - 30 MG
     Route: 048
  12. ACTOS [Concomitant]
     Dosage: STRENGTH - 30 - 40 MG 1 TABLET DAILY
     Route: 048
  13. SKELAXIN [Concomitant]
     Indication: MUSCLE RELAXANT THERAPY
     Route: 048
  14. SKELAXIN [Concomitant]
     Indication: FIBROMYALGIA
     Route: 048
  15. WELLBUTRIN [Concomitant]
     Route: 048
  16. ALBUTEROL [Concomitant]
     Dosage: Q. 4 HOURS FOR THE NEXT 2 TO 3 DAYS AND THEN Q. 4 HOURS P.R.N. THEREAFTER, STRENGTH 2.5 MG/3ML
     Route: 055
  17. GLUCOPHAGE [Concomitant]
     Dosage: 20 - 100 MG
     Route: 048
  18. HYDROCODONE BITARTRATE + ACETAMINOPHEN [Concomitant]
     Indication: BACK PAIN
     Dosage: 5 / 500 MG AS REQUIRED
     Route: 048
  19. HYDROCODONE BITARTRATE + ACETAMINOPHEN [Concomitant]
     Indication: FIBROMYALGIA
     Dosage: 5 / 500 MG AS REQUIRED
     Route: 048
  20. TRAZODONE HCL [Concomitant]
     Dosage: 50 - 300 MG
     Route: 048
  21. LAMICTAL [Concomitant]
     Indication: NEURALGIA
     Dosage: 1 TABLET IN THE MORNING AND HALF TABLET AT NIGHT TIME
     Route: 048
  22. FLOMAX [Concomitant]
     Route: 048
  23. SOMA [Concomitant]
     Indication: MUSCLE SPASMS
     Route: 048
  24. SOMA [Concomitant]
     Indication: NEURALGIA
     Route: 048
  25. SOMA [Concomitant]
     Indication: BACK PAIN
     Route: 048
  26. FLEXERIL [Concomitant]
     Route: 048
  27. TRICOR [Concomitant]
     Indication: HYPERTRIGLYCERIDAEMIA
     Dosage: 150 - 160 MG
     Route: 048
  28. LEVOXYL [Concomitant]
     Route: 048
  29. ACIPHEX [Concomitant]
     Indication: GASTROOESOPHAGEAL REFLUX DISEASE
     Route: 048
  30. LASIX [Concomitant]
     Dosage: 40 - 160 MG FLUCTUATING
     Route: 048
  31. GLIPIZIDE [Concomitant]
     Route: 048
  32. ULTRACET [Concomitant]
     Dosage: 20 - 120 MG FLUCTUATING
     Route: 048
  33. LIPITOR [Concomitant]
     Route: 065

REACTIONS (28)
  - ABSCESS JAW [None]
  - ANGINA PECTORIS [None]
  - BACK PAIN [None]
  - BRONCHITIS [None]
  - CARPAL TUNNEL SYNDROME [None]
  - CHEST PAIN [None]
  - CHRONIC OBSTRUCTIVE PULMONARY DISEASE [None]
  - DEPRESSION [None]
  - DIABETIC NEUROPATHY [None]
  - GENERALISED ANXIETY DISORDER [None]
  - INSOMNIA [None]
  - JOINT SPRAIN [None]
  - MIGRAINE [None]
  - MUSCLE STRAIN [None]
  - NEUROPATHY PERIPHERAL [None]
  - PAIN IN EXTREMITY [None]
  - PANIC ATTACK [None]
  - PSYCHOTIC DISORDER [None]
  - ROTATOR CUFF SYNDROME [None]
  - SCHIZOAFFECTIVE DISORDER [None]
  - SCHIZOPHRENIA [None]
  - SCHIZOPHRENIA, PARANOID TYPE [None]
  - SUICIDAL IDEATION [None]
  - TOOTHACHE [None]
  - TYPE 2 DIABETES MELLITUS [None]
  - URINARY RETENTION [None]
  - URINARY TRACT INFECTION [None]
  - WEIGHT INCREASED [None]
